FAERS Safety Report 8886411 (Version 1)
Quarter: 2012Q4

REPORT INFORMATION
  Report Type: 
  Country: CA (occurrence: CA)
  Receive Date: 20121105
  Receipt Date: 20121105
  Transmission Date: 20130627
  Serious: Yes (Hospitalization, Other)
  Sender: FDA-Public Use
  Company Number: CA-PFIZER INC-2012273968

PATIENT
  Age: 43 Year
  Sex: Female

DRUGS (12)
  1. ADVIL [Suspect]
     Dosage: UNK
  2. CLINDAMYCIN HCL [Suspect]
     Dosage: UNK
  3. TYLENOL [Suspect]
     Dosage: UNK
  4. COPAXONE [Suspect]
     Indication: MULTIPLE SCLEROSIS
     Dosage: 20 mg, UNK
     Dates: start: 20120523
  5. VITAMIN D [Concomitant]
     Dosage: UNK
  6. MULTIVITAMINS [Concomitant]
     Dosage: UNK
  7. COVERSYL [Concomitant]
     Dosage: UNK
  8. ASA [Concomitant]
     Dosage: UNK
  9. SYNTHROID [Concomitant]
     Dosage: UNK
  10. METFORMIN [Concomitant]
     Dosage: UNK
  11. CRESTOR [Concomitant]
     Dosage: UNK
  12. OMEPRAZOLE [Concomitant]
     Dosage: UNK

REACTIONS (5)
  - Suicide attempt [Unknown]
  - Suicidal ideation [Unknown]
  - Intentional overdose [Unknown]
  - Depression [Unknown]
  - Fatigue [Unknown]
